FAERS Safety Report 6226311-5 (Version None)
Quarter: 2009Q2

REPORT INFORMATION
  Report Type: 
  Country: None (occurrence: None)
  Receive Date: 20090612
  Receipt Date: 20090513
  Transmission Date: 20091009
  Serious: No
  Sender: FDA-Public Use
  Company Number: US-ABBOTT-09P-163-0573360-00

PATIENT
  Sex: Male
  Weight: 19.068 kg

DRUGS (5)
  1. HUMIRA [Suspect]
     Indication: JUVENILE ARTHRITIS
     Route: 058
     Dates: start: 20090510, end: 20090510
  2. HUMIRA [Suspect]
     Dosage: PRE-FILLED SYRINGE
     Route: 058
     Dates: start: 20090329
  3. METHOTREXATE [Concomitant]
     Indication: JUVENILE ARTHRITIS
     Route: 048
  4. CELEBREX [Concomitant]
     Indication: JUVENILE ARTHRITIS
     Route: 048
  5. TYLENOL W/ CODEINE [Concomitant]
     Indication: PAIN
     Route: 048

REACTIONS (2)
  - DRUG DISPENSING ERROR [None]
  - DRUG DOSE OMISSION [None]
